FAERS Safety Report 8121866-8 (Version None)
Quarter: 2012Q1

REPORT INFORMATION
  Report Type: 
  Country: None (occurrence: None)
  Receive Date: 20120207
  Receipt Date: 20120207
  Transmission Date: 20120608
  Serious: Yes (Life-Threatening)
  Sender: FDA-Public Use
  Company Number: None

PATIENT
  Age: 62 Year
  Sex: Male
  Weight: 45.8133 kg

DRUGS (1)
  1. ZOLPIDEM [Suspect]
     Indication: INSOMNIA
     Dosage: 10 MG HS PO
     Route: 048
     Dates: start: 20080104, end: 20111103

REACTIONS (2)
  - SLEEP-RELATED EATING DISORDER [None]
  - SOMNAMBULISM [None]
